FAERS Safety Report 9200186 (Version 2)
Quarter: 2013Q2

REPORT INFORMATION
  Report Type: Spontaneous
  Country: BR (occurrence: BR)
  Receive Date: 20130329
  Receipt Date: 20130402
  Transmission Date: 20140414
  Serious: Yes (Death, Life-Threatening, Hospitalization, Disabling)
  Sender: FDA-Public Use
  Company Number: BR-B.I. PHARMACEUTICALS,INC./RIDGEFIELD-2013-BR-00318BR

PATIENT
  Age: 80 Year
  Sex: Female

DRUGS (4)
  1. SPIRIVA RESPIMAT [Suspect]
     Indication: CHRONIC OBSTRUCTIVE PULMONARY DISEASE
     Dosage: 5 MCG
     Route: 055
     Dates: end: 20130302
  2. EXODUS [Concomitant]
     Indication: DEPRESSION
     Dosage: 10 MG
     Dates: end: 20130316
  3. RAZAPINA [Concomitant]
     Indication: DEPRESSION
     Dates: end: 20130316
  4. ALPRAZOLAM [Concomitant]
     Indication: DEPRESSION
     Dosage: 0.5 MG
     Dates: end: 20130316

REACTIONS (2)
  - Respiratory failure [Fatal]
  - Asthenia [Unknown]
